FAERS Safety Report 5885810-6 (Version None)
Quarter: 2008Q3

REPORT INFORMATION
  Report Type: 
  Country: None (occurrence: None)
  Receive Date: 20080917
  Receipt Date: 20080905
  Transmission Date: 20090109
  Serious: Yes (Other)
  Sender: FDA-Public Use
  Company Number: US-JNJFOC-20080901956

PATIENT
  Age: 18 Year
  Sex: Female
  Weight: 99.79 kg

DRUGS (1)
  1. INVEGA [Suspect]
     Indication: BIPOLAR DISORDER
     Route: 048

REACTIONS (3)
  - BLOOD PROLACTIN INCREASED [None]
  - BRAIN NEOPLASM [None]
  - GALACTORRHOEA [None]
